FAERS Safety Report 21839044 (Version 1)
Quarter: 2023Q1

REPORT INFORMATION
  Report Type: Spontaneous
  Country: US (occurrence: None)
  Receive Date: 20230108
  Receipt Date: 20230108
  Transmission Date: 20230417
  Serious: Yes (Hospitalization)
  Sender: FDA-Public Use
  Company Number: None

PATIENT
  Age: 71 Year
  Sex: Male
  Weight: 115 kg

DRUGS (1)
  1. QUETIAPINE FUMARATE [Suspect]
     Active Substance: QUETIAPINE FUMARATE
     Indication: Insomnia
     Dosage: FREQUENCY : AT BEDTIME;?
     Route: 048
     Dates: start: 20220812, end: 20220831

REACTIONS (7)
  - Dizziness [None]
  - Visual impairment [None]
  - Feeling abnormal [None]
  - Nausea [None]
  - Headache [None]
  - Vomiting [None]
  - Vertigo [None]

NARRATIVE: CASE EVENT DATE: 20220831
